FAERS Safety Report 9871185 (Version 1)
Quarter: 2014Q1

REPORT INFORMATION
  Report Type: Spontaneous
  Country: US (occurrence: US)
  Receive Date: 20140205
  Receipt Date: 20140205
  Transmission Date: 20141002
  Serious: Yes (Hospitalization, Other)
  Sender: FDA-Public Use
  Company Number: US-SA-2014SA012697

PATIENT
  Age: 73 Year
  Sex: Female

DRUGS (3)
  1. LANTUS SOLOSTAR [Suspect]
     Indication: TYPE 2 DIABETES MELLITUS
     Dosage: DOSE:35 UNIT(S)
     Route: 051
  2. SOLOSTAR [Concomitant]
     Indication: TYPE 2 DIABETES MELLITUS
  3. ANTIDEPRESSANTS [Concomitant]

REACTIONS (9)
  - Osteoarthritis [Unknown]
  - Rheumatoid arthritis [Unknown]
  - Mobility decreased [Unknown]
  - Back disorder [Unknown]
  - Fall [Unknown]
  - Confusional state [Unknown]
  - Dyspnoea [Unknown]
  - Dyspepsia [Unknown]
  - Frustration [Unknown]
